FAERS Safety Report 8941732 (Version 1)
Quarter: 2012Q4

REPORT INFORMATION
  Report Type: Report from Study
  Country: RO (occurrence: RO)
  Receive Date: 20121203
  Receipt Date: 20121203
  Transmission Date: 20130627
  Serious: Yes (Other)
  Sender: FDA-Public Use
  Company Number: PHHY2012RO109203

PATIENT
  Age: 72 Year
  Sex: Male

DRUGS (2)
  1. STALEVO [Suspect]
     Dosage: 200 mg, UNK
     Dates: start: 20120924
  2. NICOMOL [Suspect]

REACTIONS (1)
  - Intraocular pressure increased [Recovered/Resolved]
